FAERS Safety Report 5079971-9 (Version None)
Quarter: 2006Q3

REPORT INFORMATION
  Report Type: 
  Country: None (occurrence: None)
  Receive Date: 20060809
  Receipt Date: 20060728
  Transmission Date: 20061208
  Serious: Yes (Other)
  Sender: FDA-Public Use
  Company Number: 228122

PATIENT
  Sex: 0

DRUGS (3)
  1. RITUXAN [Suspect]
     Indication: CHRONIC LYMPHOCYTIC LEUKAEMIA
  2. FLUDARABINE PHOSPHATE [Suspect]
     Indication: CHRONIC LYMPHOCYTIC LEUKAEMIA
  3. CONCOMITANT DRUGS (GENERIC COMPONENT(S)) [Concomitant]

REACTIONS (3)
  - DEPRESSION [None]
  - PANCYTOPENIA [None]
  - UNEVALUABLE EVENT [None]
